FAERS Safety Report 9704716 (Version 2)
Quarter: 2013Q4

REPORT INFORMATION
  Report Type: Report from Study
  Country: AT (occurrence: AT)
  Receive Date: 20131122
  Receipt Date: 20131206
  Transmission Date: 20140711
  Serious: Yes (Other)
  Sender: FDA-Public Use
  Company Number: AT-ROCHE-1306543

PATIENT
  Sex: Male

DRUGS (4)
  1. RIBAVIRIN [Suspect]
     Indication: CHRONIC HEPATITIS C
     Route: 048
     Dates: start: 20111025
  2. PEG-INTERFERON ALFA 2A [Suspect]
     Indication: CHRONIC HEPATITIS C
     Route: 058
     Dates: start: 20111025
  3. NYSTATIN [Concomitant]
  4. BI 201335 [Suspect]
     Indication: HEPATITIS C
     Route: 048
     Dates: start: 20111025, end: 20120409

REACTIONS (1)
  - Cerebrovascular accident [Recovered/Resolved]
